FAERS Safety Report 9727121 (Version 1)
Quarter: 2013Q4

REPORT INFORMATION
  Report Type: Spontaneous
  Country: GB (occurrence: None)
  Receive Date: 20131129
  Receipt Date: 20131129
  Transmission Date: 20140711
  Serious: Yes (Life-Threatening, Hospitalization)
  Sender: FDA-Public Use
  Company Number: 2013P1021383

PATIENT
  Age: 66 Year
  Sex: Female

DRUGS (3)
  1. METFORMIN [Suspect]
     Indication: TYPE 2 DIABETES MELLITUS
  2. RAMIPRIL [Suspect]
     Indication: HYPERTENSION
  3. BENDROFLUMETHIAZIDE [Suspect]

REACTIONS (13)
  - Adenocarcinoma of colon [None]
  - Lactic acidosis [None]
  - Diarrhoea [None]
  - Hypotension [None]
  - Hypoglycaemia [None]
  - Hyperkalaemia [None]
  - Bradycardia [None]
  - Intestinal ischaemia [None]
  - Renal failure acute [None]
  - Dehydration [None]
  - Sepsis [None]
  - Cardiac arrest [None]
  - Large intestine perforation [None]
